FAERS Safety Report 13454620 (Version 1)
Quarter: 2017Q2

REPORT INFORMATION
  Report Type: Spontaneous
  Country: US (occurrence: US)
  Receive Date: 20170418
  Receipt Date: 20170418
  Transmission Date: 20170830
  Serious: Yes (Death)
  Sender: FDA-Public Use
  Company Number: None

PATIENT
  Age: 64 Year
  Sex: Female
  Weight: 98.8 kg

DRUGS (1)
  1. APIXABAN [Suspect]
     Active Substance: APIXABAN
     Indication: PULMONARY EMBOLISM
     Route: 048
     Dates: start: 20161219, end: 20170407

REACTIONS (5)
  - Dyspnoea [None]
  - Chemotherapy toxicity attenuation [None]
  - Pain [None]
  - General physical health deterioration [None]
  - Hypotension [None]

NARRATIVE: CASE EVENT DATE: 20170417
